FAERS Safety Report 9139778 (Version 3)
Quarter: 2013Q4

REPORT INFORMATION
  Report Type: Spontaneous
  Country: US (occurrence: US)
  Receive Date: 20130305
  Receipt Date: 20131120
  Transmission Date: 20140711
  Serious: Yes (Other)
  Sender: FDA-Public Use
  Company Number: US-PFIZER INC-2013074388

PATIENT
  Age: 88 Year
  Sex: Female
  Weight: 63.49 kg

DRUGS (2)
  1. LIPITOR [Suspect]
     Indication: BLOOD CHOLESTEROL ABNORMAL
     Dosage: 20 MG, 1X/DAY
  2. INSULIN [Concomitant]
     Indication: DIABETES MELLITUS
     Dosage: 17 MG, 1X/DAY

REACTIONS (1)
  - Breast disorder [Unknown]
